FAERS Safety Report 7229233-6 (Version None)
Quarter: 2011Q1

REPORT INFORMATION
  Report Type: 
  Country: None (occurrence: None)
  Receive Date: 20110117
  Receipt Date: 20110104
  Transmission Date: 20110831
  Serious: Yes (Other)
  Sender: FDA-Public Use
  Company Number: ZA-ELI_LILLY_AND_COMPANY-ZA201101001295

PATIENT
  Sex: Female
  Weight: 76 kg

DRUGS (4)
  1. CYMBALTA [Suspect]
     Indication: DEPRESSION
     Dosage: 60 MG, DAILY (1/D)
     Route: 048
  2. METHOTREXATE /00113801/ [Concomitant]
     Dosage: UNK UNK, DAILY (1/D)
     Route: 048
  3. ARAVA [Concomitant]
     Dosage: UNK UNK, DAILY (1/D)
     Route: 048
  4. CITALOPRAM [Concomitant]
     Dosage: UNK UNK, DAILY (1/D)
     Route: 048

REACTIONS (2)
  - DYSPNOEA [None]
  - PRURITUS [None]
